FAERS Safety Report 5816811-1 (Version None)
Quarter: 2008Q3

REPORT INFORMATION
  Report Type: 
  Country: None (occurrence: None)
  Receive Date: 20080721
  Receipt Date: 20080709
  Transmission Date: 20090109
  Serious: Yes (Other)
  Sender: FDA-Public Use
  Company Number: US-ELI_LILLY_AND_COMPANY-US200807001726

PATIENT
  Age: 69 Year
  Sex: Female

DRUGS (5)
  1. CYMBALTA [Suspect]
     Indication: NEUROPATHY PERIPHERAL
     Dosage: 30 MG, DAILY (1/D)
     Dates: start: 20080623, end: 20080701
  2. CYMBALTA [Interacting]
     Dosage: 30 MG, QOD
     Dates: start: 20080702
  3. COUMADIN [Concomitant]
  4. TOPROL-XL [Concomitant]
     Dosage: 25 MG, UNK
  5. ASPIRIN [Concomitant]
     Dosage: 81 MG, UNK

REACTIONS (3)
  - DRUG INTERACTION [None]
  - FAMILIAL TREMOR [None]
  - INTERNATIONAL NORMALISED RATIO DECREASED [None]
